FAERS Safety Report 11614963 (Version 1)
Quarter: 2015Q4

REPORT INFORMATION
  Report Type: Spontaneous
  Country: US (occurrence: None)
  Receive Date: 20151008
  Receipt Date: 20151008
  Transmission Date: 20160304
  Serious: No
  Sender: FDA-Public Use
  Company Number: None

PATIENT
  Sex: Female

DRUGS (2)
  1. COLISTEMETHATE 150 MG [Suspect]
     Active Substance: COLISTIMETHATE SODIUM
     Indication: CYSTIC FIBROSIS
     Route: 055
     Dates: start: 20151003
  2. CAYSTON [Concomitant]
     Active Substance: AZTREONAM

REACTIONS (1)
  - Hospitalisation [None]
